FAERS Safety Report 8078788-0 (Version None)
Quarter: 2012Q1

REPORT INFORMATION
  Report Type: 
  Country: None (occurrence: None)
  Receive Date: 20120127
  Receipt Date: 20110111
  Transmission Date: 20120608
  Serious: No
  Sender: FDA-Public Use
  Company Number: US-ABBOTT-11P-163-0696464-00

PATIENT
  Age: 46 Year
  Sex: Male

DRUGS (10)
  1. HUMIRA [Suspect]
     Indication: RHEUMATOID ARTHRITIS
     Route: 058
  2. FOLIC ACID [Concomitant]
     Indication: PRODUCT USED FOR UNKNOWN INDICATION
  3. TYLENOL-500 [Concomitant]
     Indication: PAIN
  4. CLARITIN-D [Concomitant]
     Indication: HYPERSENSITIVITY
  5. PREDNISONE TAB [Concomitant]
     Indication: PRODUCT USED FOR UNKNOWN INDICATION
  6. VITAMIN TAB [Concomitant]
     Indication: PRODUCT USED FOR UNKNOWN INDICATION
  7. HYDROCODONE [Concomitant]
     Indication: PAIN
  8. IMIPROSOL [Concomitant]
     Indication: RHEUMATOID ARTHRITIS
  9. METHOTREXATE [Concomitant]
     Indication: PRODUCT USED FOR UNKNOWN INDICATION
  10. SODIUM DICLOSINAC [Concomitant]
     Indication: RHEUMATOID ARTHRITIS

REACTIONS (1)
  - GASTROENTERITIS VIRAL [None]
